FAERS Safety Report 23518782 (Version 1)
Quarter: 2024Q1

REPORT INFORMATION
  Report Type: Spontaneous
  Country: CN (occurrence: CN)
  Receive Date: 20240213
  Receipt Date: 20240213
  Transmission Date: 20240410
  Serious: Yes (Other)
  Sender: FDA-Public Use
  Company Number: CN-PFIZER INC-PV202400019787

PATIENT
  Age: 47 Year
  Sex: Female
  Weight: 46 kg

DRUGS (1)
  1. LORLATINIB [Suspect]
     Active Substance: LORLATINIB
     Indication: Neoplasm
     Dosage: 100 MG, 1X/DAY
     Route: 041
     Dates: start: 20240101, end: 20240201

REACTIONS (5)
  - Hallucination [Recovering/Resolving]
  - Hallucination, visual [Recovering/Resolving]
  - Dizziness [Unknown]
  - Decreased appetite [Unknown]
  - Depressed mood [Unknown]

NARRATIVE: CASE EVENT DATE: 20240131
